FAERS Safety Report 15558230 (Version 1)
Quarter: 2018Q4

REPORT INFORMATION
  Report Type: Other
  Country: HU (occurrence: HU)
  Receive Date: 20181027
  Receipt Date: 20181027
  Transmission Date: 20190205
  Serious: Yes (Other)
  Sender: FDA-Public Use
  Company Number: HU-ACTELION-A-CH2018-180574

PATIENT

DRUGS (1)
  1. BOSENTAN. [Suspect]
     Active Substance: BOSENTAN
     Indication: SCLERODERMA ASSOCIATED DIGITAL ULCER
     Route: 048

REACTIONS (7)
  - Vertigo [Unknown]
  - Gastrointestinal disorder [Unknown]
  - Laboratory test abnormal [Unknown]
  - Hepatic enzyme abnormal [Unknown]
  - Gangrene [Unknown]
  - Oedema peripheral [Unknown]
  - Hypotension [Unknown]
